FAERS Safety Report 10620140 (Version 1)
Quarter: 2014Q4

REPORT INFORMATION
  Report Type: Spontaneous
  Country: US (occurrence: US)
  Receive Date: 20141202
  Receipt Date: 20141202
  Transmission Date: 20150529
  Serious: No
  Sender: FDA-Public Use
  Company Number: US-PURDUE-USA-2014-0118925

PATIENT
  Age: 64 Year
  Sex: Female

DRUGS (1)
  1. INTERMEZZO [Suspect]
     Active Substance: ZOLPIDEM TARTRATE
     Indication: INSOMNIA
     Dosage: 1.75 MG, HS
     Route: 060
     Dates: start: 20141023, end: 201411

REACTIONS (2)
  - Product packaging issue [Unknown]
  - Drug ineffective [Unknown]

NARRATIVE: CASE EVENT DATE: 201410
